FAERS Safety Report 7844499-7 (Version None)
Quarter: 2011Q4

REPORT INFORMATION
  Report Type: 
  Country: None (occurrence: None)
  Receive Date: 20111025
  Receipt Date: 20111021
  Transmission Date: 20120403
  Serious: Yes (Death, Life-Threatening, Hospitalization)
  Sender: FDA-Public Use
  Company Number: GB-BRISTOL-MYERS SQUIBB COMPANY-15674708

PATIENT
  Age: 65 Year
  Sex: Male

DRUGS (1)
  1. YERVOY [Suspect]
     Indication: MALIGNANT MELANOMA
     Dosage: VIAL NO: 256867-256872
     Route: 042
     Dates: start: 20110218, end: 20110404

REACTIONS (3)
  - COLITIS [None]
  - DIARRHOEA [None]
  - LARGE INTESTINE PERFORATION [None]
